FAERS Safety Report 4710784-0 (Version None)
Quarter: 2005Q3

REPORT INFORMATION
  Report Type: 
  Country: None (occurrence: None)
  Receive Date: 20050708
  Receipt Date: 20050622
  Transmission Date: 20060218
  Serious: Yes (Hospitalization, Other)
  Sender: FDA-Public Use
  Company Number: 2005-DE-02379GD

PATIENT
  Age: 70 Year
  Sex: Male

DRUGS (8)
  1. MORPHINE [Suspect]
     Indication: SACRAL PAIN
     Dosage: 15 MG EVERY 4 H IF NEEDED (NR, EVERY 4 H IF NEEDED), PO   SEE IMAGE
     Route: 048
  2. DIPYRONE TAB [Suspect]
     Indication: SACRAL PAIN
     Dosage: PO
     Route: 048
  3. PARACETAMOL/CODEINE [Suspect]
     Indication: SACRAL PAIN
     Dosage: CODEINE 30 MG + PARACETAMOL 500
  4. DEXAMETHASONE [Suspect]
     Indication: SACRAL PAIN
  5. CARBAMAZEPINE [Suspect]
     Indication: SACRAL PAIN
     Dosage: 300 MG
  6. FENTANYL [Suspect]
     Indication: SACRAL PAIN
     Dosage: 150 MCG/H , TD
     Route: 062
  7. TENOXICAM (TENOXICAM) [Suspect]
     Indication: SACRAL PAIN
     Dosage: 20 MG
  8. AMITRIPTYLINE (AMITRIPYTLINE) [Suspect]
     Indication: SACRAL PAIN
     Dosage: 50 MG

REACTIONS (11)
  - CHORDOMA [None]
  - CONSTIPATION [None]
  - DRUG INEFFECTIVE [None]
  - LUNG NEOPLASM [None]
  - METASTASES TO LIVER [None]
  - OSTEOLYSIS [None]
  - PAIN IN EXTREMITY [None]
  - RECURRENT CANCER [None]
  - SOFT TISSUE DISORDER [None]
  - URINARY INCONTINENCE [None]
  - WOUND INFECTION [None]
